FAERS Safety Report 4277948-4 (Version None)
Quarter: 2004Q1

REPORT INFORMATION
  Report Type: 
  Country: None (occurrence: None)
  Receive Date: 20040120
  Receipt Date: 20040108
  Transmission Date: 20041129
  Serious: Yes (Death, Hospitalization)
  Sender: FDA-Public Use
  Company Number: US-SHR-04-019541

PATIENT
  Age: 19 Year
  Sex: Male

DRUGS (1)
  1. BETASERON [Suspect]
     Indication: MULTIPLE SCLEROSIS
     Dosage: 8 MIU, EVERY, 2D, SUBCUTANEOUS
     Route: 058
     Dates: start: 20020117, end: 20031224

REACTIONS (9)
  - APHASIA [None]
  - CARDIO-RESPIRATORY ARREST [None]
  - DYSPNOEA [None]
  - MULTIPLE SCLEROSIS RELAPSE [None]
  - MUSCULOSKELETAL STIFFNESS [None]
  - PYREXIA [None]
  - STAPHYLOCOCCAL INFECTION [None]
  - TREMOR [None]
  - VOMITING [None]
